FAERS Safety Report 14709844 (Version 1)
Quarter: 2018Q2

REPORT INFORMATION
  Report Type: Spontaneous
  Country: JP (occurrence: JP)
  Receive Date: 20180403
  Receipt Date: 20180403
  Transmission Date: 20180711
  Serious: Yes (Hospitalization, Other)
  Sender: FDA-Public Use
  Company Number: JP-ABBVIE-18S-087-2306776-00

PATIENT
  Age: 9 Year
  Sex: Male
  Weight: 21 kg

DRUGS (9)
  1. NALOXONE HYDROCHLORIDE. [Concomitant]
     Active Substance: NALOXONE HYDROCHLORIDE
     Indication: MUSCLE CONTRACTURE
     Route: 042
     Dates: start: 20141211, end: 20141211
  2. REMIFENTANIL HYDROCHLORIDE. [Suspect]
     Active Substance: REMIFENTANIL HYDROCHLORIDE
     Indication: ANALGESIC THERAPY
     Dosage: 0.1 TO 0.7 MCG/KG/MIN (1 IN 1 DAY)
     Route: 065
     Dates: start: 20141211, end: 20141211
  3. SEVOFRANE [Suspect]
     Active Substance: SEVOFLURANE
     Indication: INDUCTION AND MAINTENANCE OF ANAESTHESIA
     Dosage: 1% TO 8% (ALSO REPORTED AS 1% TO 9%) (1 IN 1 DAY)
     Route: 055
     Dates: start: 20141211, end: 20141211
  4. ROCORONIUM BROMIDE [Suspect]
     Active Substance: ROCURONIUM BROMIDE
     Indication: HYPOTONIA
     Dosage: 35 TO 84 MG (7 IN 1 DAY)
     Route: 042
     Dates: start: 20141211, end: 20141211
  5. BRIDION [Concomitant]
     Active Substance: SUGAMMADEX
     Indication: MUSCLE CONTRACTURE
     Route: 042
     Dates: start: 20141211, end: 20141211
  6. MIDAZOLAM [Suspect]
     Active Substance: MIDAZOLAM HYDROCHLORIDE
     Indication: INDUCTION OF ANAESTHESIA
     Route: 042
     Dates: start: 20141211, end: 20141211
  7. FENTANYL CITRATE. [Suspect]
     Active Substance: FENTANYL CITRATE
     Indication: INDUCTION AND MAINTENANCE OF ANAESTHESIA
     Dosage: 60 TO 160 MCG (4 IN 1 DAY)
     Route: 042
     Dates: start: 20141211, end: 20141211
  8. ACETAMINOPHEN. [Concomitant]
     Active Substance: ACETAMINOPHEN
     Indication: ANALGESIC THERAPY
     Dates: start: 20141211, end: 20141211
  9. CEFAMEDINE ALPHA [Concomitant]
     Indication: ANTIBIOTIC THERAPY
     Route: 042
     Dates: start: 20141211, end: 20141211

REACTIONS (2)
  - Delayed recovery from anaesthesia [Recovered/Resolved]
  - Oxygen saturation decreased [None]

NARRATIVE: CASE EVENT DATE: 20141211
